FAERS Safety Report 5889632-1 (Version None)
Quarter: 2008Q3

REPORT INFORMATION
  Report Type: 
  Country: None (occurrence: None)
  Receive Date: 20080919
  Receipt Date: 20080912
  Transmission Date: 20090109
  Serious: Yes (Other)
  Sender: FDA-Public Use
  Company Number: B0537303A

PATIENT
  Age: 84 Year
  Sex: Female
  Weight: 74 kg

DRUGS (6)
  1. ARIXTRA [Suspect]
     Indication: THROMBOSIS PROPHYLAXIS
     Dosage: 2.5MG PER DAY
     Route: 058
     Dates: start: 20080827, end: 20080912
  2. AMLOD [Concomitant]
     Dosage: 5MG PER DAY
     Route: 048
  3. PROPOXYPHENE HCL AND ACETAMINOPHEN [Concomitant]
     Route: 048
  4. ART 50 [Concomitant]
     Dosage: 1UNIT PER DAY
     Route: 048
  5. NEXIUM [Concomitant]
     Route: 048
  6. LOVENOX [Concomitant]
     Indication: THROMBOSIS PROPHYLAXIS
     Dates: start: 20080819, end: 20080827

REACTIONS (3)
  - DRUG INEFFECTIVE [None]
  - PAIN IN EXTREMITY [None]
  - PHLEBITIS [None]
